FAERS Safety Report 17912657 (Version 1)
Quarter: 2020Q2

REPORT INFORMATION
  Report Type: Report from Study
  Country: US (occurrence: US)
  Receive Date: 20200618
  Receipt Date: 20200618
  Transmission Date: 20200714
  Serious: Yes (Other)
  Sender: FDA-Public Use
  Company Number: US-ROCHE-2620621

PATIENT
  Sex: Male
  Weight: 77.18 kg

DRUGS (4)
  1. FINASTERIDE. [Concomitant]
     Active Substance: FINASTERIDE
  2. BACLOFEN. [Concomitant]
     Active Substance: BACLOFEN
  3. OCREVUS [Suspect]
     Active Substance: OCRELIZUMAB
     Indication: MULTIPLE SCLEROSIS
     Dosage: YES
     Route: 042
     Dates: start: 20170720
  4. POTASSIUM CHLORIDE. [Concomitant]
     Active Substance: POTASSIUM CHLORIDE

REACTIONS (8)
  - Urinary tract infection [Unknown]
  - Musculoskeletal stiffness [Unknown]
  - Constipation [Unknown]
  - Hypertension [Unknown]
  - Restless legs syndrome [Unknown]
  - Insomnia [Unknown]
  - Seasonal allergy [Unknown]
  - Quadriplegia [Not Recovered/Not Resolved]
